FAERS Safety Report 24111418 (Version 1)
Quarter: 2024Q3

REPORT INFORMATION
  Report Type: Spontaneous
  Country: US (occurrence: US)
  Receive Date: 20240718
  Receipt Date: 20240718
  Transmission Date: 20241016
  Serious: Yes (Death, Other)
  Sender: AMGEN
  Company Number: US-AMGEN-USASP2024138467

PATIENT

DRUGS (1)
  1. BEVACIZUMAB [Suspect]
     Active Substance: BEVACIZUMAB
     Indication: Radiation injury
     Dosage: UNK
     Route: 065

REACTIONS (5)
  - Death [Fatal]
  - Cerebral haemorrhage [Fatal]
  - Change in seizure presentation [Unknown]
  - Neurological decompensation [Unknown]
  - Off label use [Unknown]
